FAERS Safety Report 14450713 (Version 1)
Quarter: 2018Q1

REPORT INFORMATION
  Report Type: Spontaneous
  Country: US (occurrence: US)
  Receive Date: 20180129
  Receipt Date: 20180129
  Transmission Date: 20180509
  Serious: Yes (Other)
  Sender: FDA-Public Use
  Company Number: US-ACCORD-062965

PATIENT
  Age: 35 Year
  Sex: Male

DRUGS (6)
  1. TRAMADOL/TRAMADOL HYDROCHLORIDE [Suspect]
     Active Substance: TRAMADOL HYDROCHLORIDE
     Indication: ABDOMINAL PAIN
  2. OXYCODONE/OXYCODONE HYDROCHLORIDE/OXYCODONE PECTINATE/OXYCODONE TEREPHTHALATE [Suspect]
     Active Substance: OXYCODONE
     Indication: ABDOMINAL PAIN
  3. PREDNISONE. [Concomitant]
     Active Substance: PREDNISONE
     Indication: INFECTIOUS COLITIS
  4. MESALAZINE [Concomitant]
     Active Substance: MESALAMINE
     Indication: INFECTIOUS COLITIS
  5. AZATHIOPRINE. [Concomitant]
     Active Substance: AZATHIOPRINE
     Indication: INFECTIOUS COLITIS
  6. INFLIXIMAB [Concomitant]
     Active Substance: INFLIXIMAB
     Indication: INFECTIOUS COLITIS

REACTIONS (3)
  - Constipation [Unknown]
  - Irritable bowel syndrome [Unknown]
  - Narcotic bowel syndrome [Unknown]
